FAERS Safety Report 15516470 (Version 1)
Quarter: 2018Q4

REPORT INFORMATION
  Report Type: Spontaneous
  Country: US (occurrence: US)
  Receive Date: 20181011
  Receipt Date: 20181011
  Transmission Date: 20190205
  Serious: Yes (Life-Threatening, Hospitalization, Disabling)
  Sender: FDA-Public Use
  Company Number: None

PATIENT
  Age: 23 Year
  Sex: Male
  Weight: 72 kg

DRUGS (1)
  1. REGENEPURE DR (ZINC OXIDE) [Suspect]
     Active Substance: ZINC OXIDE
     Indication: ALOPECIA
     Dosage: ?          OTHER STRENGTH:N/A;OTHER FREQUENCY:2-3 TIMES PER WEEK;OTHER ROUTE:APPLIED TO SCALP?
     Dates: start: 20150201, end: 20180601

REACTIONS (9)
  - Fatigue [None]
  - Gynaecomastia [None]
  - Depression [None]
  - Feeling abnormal [None]
  - Anxiety [None]
  - Heart rate irregular [None]
  - Erectile dysfunction [None]
  - Arthralgia [None]
  - Suicidal ideation [None]

NARRATIVE: CASE EVENT DATE: 20150201
